FAERS Safety Report 22394768 (Version 1)
Quarter: 2023Q2

REPORT INFORMATION
  Report Type: Spontaneous
  Country: US (occurrence: US)
  Receive Date: 20230601
  Receipt Date: 20230601
  Transmission Date: 20230722
  Serious: Yes (Other)
  Sender: FDA-Public Use
  Company Number: US-APIL-2310360US

PATIENT
  Age: 52 Year
  Sex: Female

DRUGS (18)
  1. LEXAPRO [Suspect]
     Active Substance: ESCITALOPRAM OXALATE
     Indication: Product used for unknown indication
  2. TERIFLUNOMIDE [Suspect]
     Active Substance: TERIFLUNOMIDE
     Indication: Multiple sclerosis
     Dosage: 14 MG, QD
     Route: 048
     Dates: start: 20180920
  3. GABAPENTIN [Concomitant]
     Active Substance: GABAPENTIN
  4. CAFFEINE TABS [Concomitant]
  5. ALEVE [Concomitant]
     Active Substance: NAPROXEN SODIUM
  6. BACLOFEN [Concomitant]
     Active Substance: BACLOFEN
  7. CLONAZEPAM [Concomitant]
     Active Substance: CLONAZEPAM
  8. FLUTICASONE [Concomitant]
     Active Substance: FLUTICASONE
  9. ESCITALOPRAM [Concomitant]
     Active Substance: ESCITALOPRAM OXALATE
  10. FISH OIL [Concomitant]
     Active Substance: FISH OIL
  11. VITAMIN D3 [Concomitant]
     Active Substance: CHOLECALCIFEROL
  12. MULTIVITAMIN VIT B COMPLEX [Concomitant]
  13. TYLENOL [Concomitant]
     Active Substance: ACETAMINOPHEN
  14. MAGNESIUM [Concomitant]
     Active Substance: MAGNESIUM
  15. ANTIHISTAMINES NOS [Concomitant]
     Active Substance: ANTIHISTAMINES NOS
  16. RIZATRIPTAN [Concomitant]
     Active Substance: RIZATRIPTAN
  17. LAMICTAL [Concomitant]
     Active Substance: LAMOTRIGINE
  18. PRAMIPEXOLE [Concomitant]
     Active Substance: PRAMIPEXOLE

REACTIONS (10)
  - Suicidal ideation [Unknown]
  - Intentional self-injury [Unknown]
  - Dyspepsia [Recovered/Resolved]
  - Crying [Unknown]
  - Seasonal affective disorder [Unknown]
  - Weight decreased [Unknown]
  - Anger [Unknown]
  - Mood swings [Unknown]
  - Weight increased [Unknown]
  - Drug ineffective [Unknown]

NARRATIVE: CASE EVENT DATE: 20230123
